FAERS Safety Report 8366523-8 (Version None)
Quarter: 2012Q2

REPORT INFORMATION
  Report Type: 
  Country: None (occurrence: None)
  Receive Date: 20120517
  Receipt Date: 20120511
  Transmission Date: 20120825
  Serious: Yes (Other)
  Sender: FDA-Public Use
  Company Number: PHHY2012MX030054

PATIENT
  Sex: Male

DRUGS (6)
  1. TRAMADOL HYDROCHLORIDE/ACETAMINOPHEN [Concomitant]
  2. ZOLEDRONOC ACID [Suspect]
     Indication: OSTEOPOROSIS
     Dosage: 5 MG/100ML ONCE YEAR
     Route: 042
     Dates: start: 20110318
  3. AMIODARONE HCL [Concomitant]
     Indication: ARRHYTHMIA
  4. LIPITOR [Concomitant]
     Indication: BLOOD CHOLESTEROL
     Dosage: 20 MG, QD
  5. IMDUR [Concomitant]
     Indication: CARDIAC DISORDER
     Dosage: 20 MG, QD
  6. CLOPIDOGREL BISULFATE [Concomitant]
     Indication: ANTICOAGULANT THERAPY
     Dosage: 65 MG, QD

REACTIONS (7)
  - CEREBRAL INFARCTION [None]
  - CEREBROVASCULAR ACCIDENT [None]
  - TONGUE BITING [None]
  - DYSARTHRIA [None]
  - SPINAL PAIN [None]
  - TIC [None]
  - DYSKINESIA [None]
